FAERS Safety Report 23975031 (Version 1)
Quarter: 2024Q2

REPORT INFORMATION
  Report Type: Report from Study
  Country: BR (occurrence: BR)
  Receive Date: 20240614
  Receipt Date: 20240614
  Transmission Date: 20240716
  Serious: Yes (Other)
  Sender: FDA-Public Use
  Company Number: BR-JNJFOC-20240618829

PATIENT
  Age: 62 Year
  Sex: Female
  Weight: 50 kg

DRUGS (2)
  1. SIMPONI [Suspect]
     Active Substance: GOLIMUMAB
     Indication: Rheumatoid arthritis
     Route: 058
  2. SIMPONI [Suspect]
     Active Substance: GOLIMUMAB

REACTIONS (9)
  - Rheumatoid arthritis [Unknown]
  - Uterine polyp [Unknown]
  - Prognathism [Unknown]
  - Sinusitis [Unknown]
  - Rhinitis [Unknown]
  - Bone loss [Unknown]
  - Chronic gastritis [Unknown]
  - Salivary gland disorder [Unknown]
  - Osteoarthritis [Unknown]

NARRATIVE: CASE EVENT DATE: 20231001
